FAERS Safety Report 9086302 (Version 1)
Quarter: 2013Q1

REPORT INFORMATION
  Report Type: Report from Study
  Country: US (occurrence: US)
  Receive Date: 20130131
  Receipt Date: 20130131
  Transmission Date: 20140127
  Serious: No
  Sender: FDA-Public Use
  Company Number: US-ABBOTT-12P-163-0997308-00

PATIENT
  Age: 57 Year
  Sex: Female

DRUGS (6)
  1. HUMIRA [Suspect]
     Indication: CROHN^S DISEASE
     Dates: start: 20121012
  2. CLARITIN-D [Concomitant]
     Indication: HYPERSENSITIVITY
  3. GLUCOSAMINE [Concomitant]
     Indication: VITAMIN SUPPLEMENTATION
  4. PENTASSA [Concomitant]
     Indication: CROHN^S DISEASE
  5. PAXIL [Concomitant]
     Indication: DEPRESSION
  6. TRAZADONE [Concomitant]
     Indication: PAIN

REACTIONS (1)
  - Fatigue [Recovered/Resolved]
